FAERS Safety Report 6355904-X (Version None)
Quarter: 2009Q3

REPORT INFORMATION
  Report Type: 
  Country: None (occurrence: None)
  Receive Date: 20090911
  Receipt Date: 20090911
  Transmission Date: 20100115
  Serious: No
  Sender: FDA-Public Use
  Company Number: None

PATIENT
  Age: 82 Year
  Sex: Female
  Weight: 58.514 kg

DRUGS (1)
  1. LEVAQUIN [Suspect]
     Dosage: 1 TABLET PER DAY FOR 10 DAYS

REACTIONS (5)
  - DIARRHOEA [None]
  - FUNGAL INFECTION [None]
  - NAUSEA [None]
  - RASH [None]
  - TENDON PAIN [None]
